FAERS Safety Report 8358908-0 (Version None)
Quarter: 2012Q2

REPORT INFORMATION
  Report Type: 
  Country: None (occurrence: None)
  Receive Date: 20120515
  Receipt Date: 20120507
  Transmission Date: 20120825
  Serious: No
  Sender: FDA-Public Use
  Company Number: US-BIOGENIDEC-2012BI006224

PATIENT
  Sex: Female

DRUGS (3)
  1. MECLAZINE [Concomitant]
     Indication: VERTIGO
  2. TYSABRI [Suspect]
     Indication: MULTIPLE SCLEROSIS
     Route: 042
     Dates: start: 20100825
  3. AMANTADINE HCL [Concomitant]
     Indication: FATIGUE

REACTIONS (21)
  - EAR PAIN [None]
  - MIGRAINE [None]
  - DEPRESSION [None]
  - AMNESIA [None]
  - VOMITING [None]
  - BALANCE DISORDER [None]
  - FALL [None]
  - MULTIPLE SCLEROSIS RELAPSE [None]
  - PAIN [None]
  - RHINORRHOEA [None]
  - MEMORY IMPAIRMENT [None]
  - FATIGUE [None]
  - NAUSEA [None]
  - CATARACT [None]
  - ANGER [None]
  - SOMNOLENCE [None]
  - FEELING OF DESPAIR [None]
  - HEAD INJURY [None]
  - MIDDLE EAR EFFUSION [None]
  - VERTIGO [None]
  - VISUAL IMPAIRMENT [None]
